FAERS Safety Report 5593093-X (Version None)
Quarter: 2008Q1

REPORT INFORMATION
  Report Type: 
  Country: None (occurrence: None)
  Receive Date: 20080114
  Receipt Date: 20080114
  Transmission Date: 20080703
  Serious: Yes (Other)
  Sender: FDA-Public Use
  Company Number: None

PATIENT
  Age: 46 Year
  Sex: Female
  Weight: 105.6881 kg

DRUGS (2)
  1. ADVICOR [Suspect]
     Indication: BLOOD CHOLESTEROL
     Dosage: 1 TABLET AT BEDTIME DAILY PO
     Route: 048
     Dates: start: 20060701, end: 20070111
  2. ADVICOR [Suspect]
     Indication: BLOOD CHOLESTEROL
     Dosage: 1 TABLET AT BEDTIME DAILY PO
     Route: 048
     Dates: start: 20070701, end: 20080111

REACTIONS (3)
  - ERYTHEMA [None]
  - PAIN [None]
  - PHARMACEUTICAL PRODUCT COMPLAINT [None]
